FAERS Safety Report 8980112 (Version 2)
Quarter: 2012Q4

REPORT INFORMATION
  Report Type: 
  Country: DK (occurrence: DK)
  Receive Date: 20121221
  Receipt Date: 20121228
  Transmission Date: 20130627
  Serious: Yes (Other)
  Sender: FDA-Public Use
  Company Number: PHHY2012DK117297

PATIENT
  Age: 36 Year
  Sex: Female

DRUGS (8)
  1. METFORMIN [Suspect]
     Indication: TYPE 2 DIABETES MELLITUS
     Dosage: 500 mg, BID
     Route: 048
     Dates: start: 2005
  2. SIMVASTATIN [Suspect]
     Indication: CHOLESTEROSIS
     Dosage: 40 mg, QD
     Route: 048
     Dates: start: 2006
  3. SPIRONOLACTONE [Suspect]
     Indication: HORMONE THERAPY
     Dosage: 100 mg, QD
     Route: 048
     Dates: start: 2011
  4. YASMIN [Suspect]
     Indication: CONTRACEPTION
     Dosage: 1 DF, QD
     Route: 048
     Dates: start: 2009
  5. ASPIRIN\MAGNESIUM OXIDE [Suspect]
     Indication: THROMBOSIS PROPHYLAXIS
     Dosage: 75 mg, QD
     Route: 048
     Dates: start: 2006
  6. PINEX [Suspect]
     Indication: PAIN
     Dosage: 1 g, BID
     Route: 048
     Dates: start: 2009
  7. VANIQA [Suspect]
     Indication: HIRSUTISM
     Dosage: 1 DF, BID
     Route: 061
     Dates: start: 20120528, end: 20121003
  8. VANIQA [Suspect]
     Dosage: 1 DF, BID
     Route: 061
     Dates: start: 20121015

REACTIONS (4)
  - Abortion spontaneous [Unknown]
  - Unintended pregnancy [Unknown]
  - Maternal exposure during pregnancy [Unknown]
  - Pregnancy on oral contraceptive [None]
